FAERS Safety Report 10986586 (Version 2)
Quarter: 2015Q2

REPORT INFORMATION
  Report Type: Spontaneous
  Country: JP (occurrence: None)
  Receive Date: 20150402
  Receipt Date: 20150424
  Transmission Date: 20150821
  Serious: Yes (Hospitalization, Other)
  Sender: FDA-Public Use
  Company Number: 2015FE00437

PATIENT
  Age: 86 Year
  Sex: Male
  Weight: 64 kg

DRUGS (7)
  1. BONALON [Suspect]
     Active Substance: ALENDRONATE SODIUM
     Indication: PRODUCT USED FOR UNKNOWN INDICATION
     Route: 048
     Dates: end: 20131031
  2. MUCOSOLVAN (AMBROXOL HYDROCHLORIDE) [Concomitant]
  3. ALOSITOL (ALLOPURINOL) (ALLOPURINOL) [Concomitant]
     Active Substance: ALLOPURINOL
  4. DEGARELIX (DEGARELIX) POWDER AND SOLVENT FOR SOLUTION FOR INJECTION [Suspect]
     Active Substance: DEGARELIX
     Indication: PROSTATE CANCER
     Route: 058
     Dates: start: 20131022, end: 20131022
  5. EDIROL (ELDECALCITOL) CAPSULE [Suspect]
     Active Substance: ELDECALCITOL
     Indication: PRODUCT USED FOR UNKNOWN INDICATION
     Route: 048
     Dates: end: 20131031
  6. CASODEX (BICALUTAMIDE) ORODISPERSIBLE [Concomitant]
  7. LOXONIN (LOXOPROFEN SODIUM) [Concomitant]
     Active Substance: LOXOPROFEN SODIUM

REACTIONS (6)
  - Hypocalcaemia [None]
  - Diarrhoea [None]
  - Hypercalcaemia [None]
  - Dehydration [None]
  - Pneumothorax spontaneous [None]
  - Insomnia [None]

NARRATIVE: CASE EVENT DATE: 20131031
